FAERS Safety Report 4531570-0 (Version None)
Quarter: 2004Q4

REPORT INFORMATION
  Report Type: 
  Country: None (occurrence: None)
  Receive Date: 20041216
  Receipt Date: 20041130
  Transmission Date: 20050328
  Serious: Yes (Hospitalization)
  Sender: FDA-Public Use
  Company Number: USA041184811

PATIENT
  Age: 86 Year
  Sex: Female

DRUGS (8)
  1. CYMBALTA [Suspect]
     Indication: DEPRESSION
     Dosage: 30 MG DAY
     Dates: start: 20041123
  2. LOPRESSOR [Concomitant]
  3. NORVASC [Concomitant]
  4. CELEBREX [Concomitant]
  5. TEMAZEPAM [Concomitant]
  6. ZOCOR (SIMVASTATIN RATIOPHARM) [Concomitant]
  7. ISOSORBIDE [Concomitant]
  8. ALPRAZOLAM [Concomitant]

REACTIONS (7)
  - ASTHENIA [None]
  - CAROTID ARTERY OCCLUSION [None]
  - CHEST PAIN [None]
  - FATIGUE [None]
  - INSOMNIA [None]
  - NERVOUS SYSTEM DISORDER [None]
  - SOMNOLENCE [None]
